FAERS Safety Report 6366222-8 (Version None)
Quarter: 2009Q3

REPORT INFORMATION
  Report Type: 
  Country: None (occurrence: None)
  Receive Date: 20090915
  Receipt Date: 20090901
  Transmission Date: 20100115
  Serious: Yes (Hospitalization)
  Sender: FDA-Public Use
  Company Number: 007309

PATIENT
  Age: 77 Year
  Sex: Female
  Weight: 62 kg

DRUGS (3)
  1. PLETAL [Suspect]
     Indication: ARTERIOSCLEROSIS OBLITERANS
     Dosage: 100 MG, BID ORAL
     Route: 048
     Dates: start: 20090725, end: 20090726
  2. AMLODIN (AMLODIPINE BESILATE) TABLET [Concomitant]
  3. HAJIME (ATENOLOL) TABLET [Concomitant]

REACTIONS (3)
  - ANGINA PECTORIS [None]
  - ATRIAL FIBRILLATION [None]
  - BUNDLE BRANCH BLOCK RIGHT [None]
